FAERS Safety Report 10180918 (Version 1)
Quarter: 2014Q2

REPORT INFORMATION
  Report Type: Spontaneous
  Country: US (occurrence: US)
  Receive Date: 20140519
  Receipt Date: 20140519
  Transmission Date: 20141212
  Serious: No
  Sender: FDA-Public Use
  Company Number: US-AMGEN INC.-USASP2014009161

PATIENT
  Age: 72 Year
  Sex: Female

DRUGS (6)
  1. PROLIA [Suspect]
     Indication: OSTEOPOROSIS
     Dosage: UNK
     Route: 065
     Dates: start: 201212
  2. VITAMIN D                          /00107901/ [Concomitant]
  3. TUMS                               /00193601/ [Concomitant]
  4. LIPITOR [Concomitant]
     Indication: BLOOD CHOLESTEROL INCREASED
  5. MAGNESIUM OXIDE [Concomitant]
  6. LEVODOPA-CARBIDOPA [Concomitant]
     Indication: PARKINSON^S DISEASE

REACTIONS (11)
  - Muscle spasms [Unknown]
  - Arthralgia [Unknown]
  - Pain in extremity [Unknown]
  - Muscle strain [Unknown]
  - Muscle contracture [Unknown]
  - Myalgia [Unknown]
  - Muscle tightness [Unknown]
  - Mobility decreased [Unknown]
  - Loss of consciousness [Unknown]
  - Presyncope [Unknown]
  - Nausea [Unknown]
